FAERS Safety Report 20864795 (Version 2)
Quarter: 2022Q2

REPORT INFORMATION
  Report Type: Spontaneous
  Country: BR (occurrence: BR)
  Receive Date: 20220524
  Receipt Date: 20220526
  Transmission Date: 20220721
  Serious: Yes (Other)
  Sender: FDA-Public Use
  Company Number: BR-GILEAD-2022-0582669

PATIENT
  Sex: Male

DRUGS (1)
  1. TRUVADA [Suspect]
     Active Substance: EMTRICITABINE\TENOFOVIR DISOPROXIL FUMARATE
     Indication: Prophylaxis against HIV infection
     Dosage: 200/300 MG
     Route: 065
     Dates: start: 202103

REACTIONS (1)
  - Dengue fever [Not Recovered/Not Resolved]
